FAERS Safety Report 8932473 (Version 1)
Quarter: 2012Q4

REPORT INFORMATION
  Report Type: Spontaneous
  Country: US (occurrence: None)
  Receive Date: 20121121
  Receipt Date: 20121121
  Transmission Date: 20130627
  Serious: No
  Sender: FDA-Public Use
  Company Number: None

PATIENT
  Sex: Female
  Weight: 68.04 kg

DRUGS (1)
  1. FLUPHENAZINE DECANOATE [Suspect]
     Indication: MENTAL DISORDER
     Dosage: 6.25 MG 1 EVERY 4 WEEKS ARMS
     Dates: start: 20120926

REACTIONS (3)
  - Product tampering [None]
  - Feeling abnormal [None]
  - Movement disorder [None]
